FAERS Safety Report 16412293 (Version 1)
Quarter: 2019Q2

REPORT INFORMATION
  Report Type: Spontaneous
  Country: ES (occurrence: ES)
  Receive Date: 20190610
  Receipt Date: 20190610
  Transmission Date: 20190711
  Serious: Yes (Other)
  Sender: FDA-Public Use
  Company Number: PHHY2019ES129358

PATIENT
  Sex: Male

DRUGS (1)
  1. EXFORGE [Suspect]
     Active Substance: AMLODIPINE BESYLATE\VALSARTAN
     Indication: PRODUCT USED FOR UNKNOWN INDICATION
     Dosage: 0.5 DF, BID (SINCE SATURDAY)
     Route: 065

REACTIONS (4)
  - Wrong technique in product usage process [Unknown]
  - Dizziness [Unknown]
  - Blood pressure decreased [Unknown]
  - Loss of consciousness [Unknown]
